FAERS Safety Report 23613802 (Version 1)
Quarter: 2024Q1

REPORT INFORMATION
  Report Type: Spontaneous
  Country: ES (occurrence: ES)
  Receive Date: 20240310
  Receipt Date: 20240310
  Transmission Date: 20240409
  Serious: Yes (Death, Hospitalization, Other)
  Sender: FDA-Public Use
  Company Number: ES-AEMPS-1491436

PATIENT
  Age: 74 Year
  Sex: Male

DRUGS (16)
  1. AZACITIDINE [Suspect]
     Active Substance: AZACITIDINE
     Indication: Leukaemia
     Dosage: 73.0 CYCLE 2 EVERY 28 DAYS
     Route: 058
     Dates: start: 20220602, end: 20220816
  2. INSULIN GLARGINE [Concomitant]
     Active Substance: INSULIN GLARGINE
     Indication: Diabetes mellitus
     Dosage: 16.0 IU C/24H
     Route: 058
     Dates: start: 20211202
  3. ABILIFY [Concomitant]
     Active Substance: ARIPIPRAZOLE
     Indication: Thyroidectomy
     Dosage: 5.0 MG EVERY 48 HOURS
     Route: 048
     Dates: start: 20210310
  4. ABILIFY [Concomitant]
     Active Substance: ARIPIPRAZOLE
     Indication: Thyroid cancer
  5. FOLIC ACID [Concomitant]
     Active Substance: FOLIC ACID
     Indication: Vitamin D decreased
     Dosage: 5.0 MG A-DE
     Route: 048
     Dates: start: 20211211
  6. FOLIC ACID [Concomitant]
     Active Substance: FOLIC ACID
     Indication: Blood folate decreased
  7. TRANEXAMIC ACID [Concomitant]
     Active Substance: TRANEXAMIC ACID
     Indication: Intestinal stenosis
     Dosage: 1000.0 MG EVERY 8 HOURS
     Route: 048
     Dates: start: 20220718
  8. Cidine [Concomitant]
     Indication: Lymphadenitis
     Dosage: 1.0 MG A-DECOCE
     Route: 048
     Dates: start: 20181218
  9. BUDESONIDE\FORMOTEROL [Concomitant]
     Active Substance: BUDESONIDE\FORMOTEROL
     Indication: Lymphadenitis
     Dosage: 1.0 PUFF W/12 HRS
     Route: 065
     Dates: start: 20190320
  10. LEVOTHYROXINE SODIUM [Concomitant]
     Active Substance: LEVOTHYROXINE SODIUM
     Indication: Thyroid cancer
     Dosage: 50.0 MCG A-DE
     Route: 048
     Dates: start: 20201218
  11. LEVOTHYROXINE SODIUM [Concomitant]
     Active Substance: LEVOTHYROXINE SODIUM
     Indication: Hypothyroidism
     Dosage: 200.0 MCG A-DE
     Route: 048
     Dates: start: 20201010
  12. CALCIFEDIOL [Concomitant]
     Active Substance: CALCIFEDIOL
     Indication: Vitamin D decreased
     Dosage: 0.266 MG EVERY 15 DAYS
     Route: 048
     Dates: start: 20210825
  13. NOVORAPID [Concomitant]
     Active Substance: INSULIN ASPART
     Indication: Diabetes mellitus
     Dosage: 4.0 UI A-DECOCE
     Route: 058
     Dates: start: 20210323
  14. OMEPRAZOLE STADA [Concomitant]
     Indication: Vitamin D decreased
     Dosage: 20.0 MG EVERY 12 HOURS
     Route: 048
     Dates: start: 20220407
  15. SULFAMETHOXAZOLE\TRIMETHOPRIM [Concomitant]
     Active Substance: SULFAMETHOXAZOLE\TRIMETHOPRIM
     Indication: Vitamin D decreased
     Dosage: 1.0 COMP/72 HOURS
     Route: 048
     Dates: start: 20220712
  16. VENLAFAXINE HYDROCHLORIDE [Concomitant]
     Active Substance: VENLAFAXINE HYDROCHLORIDE
     Indication: Thyroid cancer
     Dosage: 150.0 MG DE
     Route: 048
     Dates: start: 20201222

REACTIONS (1)
  - Febrile neutropenia [Fatal]

NARRATIVE: CASE EVENT DATE: 20220727
